FAERS Safety Report 24590151 (Version 1)
Quarter: 2024Q4

REPORT INFORMATION
  Report Type: Spontaneous
  Country: US (occurrence: None)
  Receive Date: 20241107
  Receipt Date: 20241107
  Transmission Date: 20250115
  Serious: No
  Sender: Public
  Company Number: None

PATIENT
  Age: 65 Year
  Sex: Male
  Weight: 103.5 kg

DRUGS (1)
  1. FARXIGA [Suspect]
     Active Substance: DAPAGLIFLOZIN PROPANEDIOL
     Indication: Cardiac disorder
     Dosage: OTHER QUANTITY : 1 TABLET(S);?FREQUENCY : AT BEDTIME;?
     Route: 048
     Dates: start: 20241009, end: 20241105

REACTIONS (2)
  - Rash erythematous [None]
  - Pruritus [None]

NARRATIVE: CASE EVENT DATE: 20241009
